FAERS Safety Report 8414314-1 (Version None)
Quarter: 2012Q2

REPORT INFORMATION
  Report Type: 
  Country: None (occurrence: None)
  Receive Date: 20120605
  Receipt Date: 20120530
  Transmission Date: 20120825
  Serious: Yes (Death)
  Sender: FDA-Public Use
  Company Number: IN-ROCHE-1075054

PATIENT
  Age: 29 Year
  Sex: Male

DRUGS (2)
  1. WARFARIN SODIUM [Concomitant]
  2. ACTIVASE [Suspect]
     Indication: PULMONARY EMBOLISM
     Route: 042

REACTIONS (2)
  - BRADYCARDIA [None]
  - DYSPNOEA [None]
